FAERS Safety Report 13111162 (Version 2)
Quarter: 2017Q1

REPORT INFORMATION
  Report Type: Report from Study
  Country: NL (occurrence: NL)
  Receive Date: 20170112
  Receipt Date: 20170117
  Transmission Date: 20170428
  Serious: Yes (Other)
  Sender: FDA-Public Use
  Company Number: NL-PFIZER INC-06H-114-0306826-00

PATIENT
  Age: 15 Year
  Sex: Male

DRUGS (1)
  1. PROPOFOL. [Suspect]
     Active Substance: PROPOFOL
     Indication: SEDATIVE THERAPY
     Dosage: 4.5 MG/KG, (PER HR)
     Route: 041

REACTIONS (2)
  - Electrocardiogram ST segment elevation [Recovered/Resolved]
  - Propofol infusion syndrome [Unknown]
